FAERS Safety Report 4855114-9 (Version None)
Quarter: 2005Q4

REPORT INFORMATION
  Report Type: 
  Country: None (occurrence: None)
  Receive Date: 20051214
  Receipt Date: 20051201
  Transmission Date: 20060501
  Serious: Yes (Other)
  Sender: FDA-Public Use
  Company Number: 2005162745

PATIENT
  Sex: Male
  Weight: 97.0698 kg

DRUGS (14)
  1. VIAGRA [Suspect]
     Indication: ERECTILE DYSFUNCTION
     Dosage: (100 MG, AS NECESSARY), ORAL
     Route: 048
  2. CIALIS [Suspect]
     Indication: ERECTILE DYSFUNCTION
     Dates: start: 20050101, end: 20050101
  3. TERAZOSIN (TERAZOSIN) [Suspect]
     Indication: MICTURITION DISORDER
  4. MORPHINE [Concomitant]
  5. IBUPROFEN [Concomitant]
  6. GLYBURIDE [Concomitant]
  7. METHOCARBAMOL [Concomitant]
  8. FELODIPINE [Concomitant]
  9. SIMVASTATIN [Concomitant]
  10. ASPIRIN [Concomitant]
  11. LISINOPRIL [Concomitant]
  12. ALPRAZOLAM [Concomitant]
  13. AMPICILLIN [Concomitant]
  14. BUSPIRONE HCL [Concomitant]

REACTIONS (8)
  - ARTHRITIS [None]
  - CORONARY ARTERY OCCLUSION [None]
  - DRUG INEFFECTIVE [None]
  - DRUG INTERACTION [None]
  - HEADACHE [None]
  - NAUSEA [None]
  - PHOTOPHOBIA [None]
  - VOMITING [None]
